FAERS Safety Report 4536618-5 (Version None)
Quarter: 2004Q4

REPORT INFORMATION
  Report Type: 
  Country: None (occurrence: None)
  Receive Date: 20041223
  Receipt Date: 20041217
  Transmission Date: 20050328
  Serious: Yes (Hospitalization)
  Sender: FDA-Public Use
  Company Number: 200419667US

PATIENT
  Sex: 0

DRUGS (2)
  1. KETEK [Suspect]
     Route: 048
  2. COUMADIN [Suspect]
     Dosage: DOSE: NOT PROVIDED

REACTIONS (1)
  - DRUG LEVEL INCREASED [None]
